FAERS Safety Report 7095921-8 (Version None)
Quarter: 2010Q4

REPORT INFORMATION
  Report Type: 
  Country: None (occurrence: None)
  Receive Date: 20101111
  Receipt Date: 20090324
  Transmission Date: 20110411
  Serious: No
  Sender: FDA-Public Use
  Company Number: US-KINGPHARMUSA00001-K200900339

PATIENT
  Sex: Female
  Weight: 86.168 kg

DRUGS (4)
  1. LEVOXYL [Suspect]
     Indication: HYPOTHYROIDISM
     Dosage: 50 MCG, QD
     Route: 048
     Dates: start: 20081001
  2. VITAMIN D3 [Concomitant]
     Dosage: UNK
     Route: 048
  3. MAG-OX [Concomitant]
     Dosage: UNK
     Route: 048
  4. RITALIN [Concomitant]
     Dosage: UNK
     Route: 048

REACTIONS (4)
  - CHEST PAIN [None]
  - GENERALISED OEDEMA [None]
  - PAIN [None]
  - WEIGHT INCREASED [None]
